FAERS Safety Report 18497080 (Version 2)
Quarter: 2020Q4

REPORT INFORMATION
  Report Type: Spontaneous
  Country: US (occurrence: US)
  Receive Date: 20201112
  Receipt Date: 20201211
  Transmission Date: 20210114
  Serious: Yes (Other)
  Sender: FDA-Public Use
  Company Number: US-LUPIN PHARMACEUTICALS INC.-2020-07233

PATIENT
  Sex: Female

DRUGS (1)
  1. LOSARTAN POTASSIUM TABLET USP 50 MG [Suspect]
     Active Substance: LOSARTAN POTASSIUM
     Indication: HYPERTENSION
     Dosage: 50 MILLIGRAM
     Route: 065
     Dates: start: 20200923, end: 20200925

REACTIONS (2)
  - Hypertension [Recovering/Resolving]
  - Product substitution issue [Unknown]
